FAERS Safety Report 5481970-X (Version None)
Quarter: 2007Q4

REPORT INFORMATION
  Report Type: 
  Country: None (occurrence: None)
  Receive Date: 20071005
  Receipt Date: 20070927
  Transmission Date: 20080405
  Serious: Yes (Hospitalization)
  Sender: FDA-Public Use
  Company Number: 2007SP007675

PATIENT
  Age: 61 Year
  Sex: Male
  Weight: 88 kg

DRUGS (2)
  1. TEMOZOLOMIDE [Suspect]
     Indication: GLIOBLASTOMA MULTIFORME
     Dosage: PO
     Route: 048
     Dates: start: 20061201, end: 20070118
  2. BOTOX [Suspect]
     Indication: MUSCULAR WEAKNESS
     Dosage: ONCE
     Dates: start: 20070201, end: 20070201

REACTIONS (15)
  - BLOOD SODIUM INCREASED [None]
  - BLOOD UREA INCREASED [None]
  - CELLULITIS [None]
  - DEPRESSION [None]
  - DIABETES MELLITUS [None]
  - GENERAL PHYSICAL HEALTH DETERIORATION [None]
  - HYPERGLYCAEMIA [None]
  - HYPOALBUMINAEMIA [None]
  - HYPONATRAEMIA [None]
  - INSOMNIA [None]
  - LYMPHOPENIA [None]
  - MYOPATHY STEROID [None]
  - NO THERAPEUTIC RESPONSE [None]
  - PAIN [None]
  - PERIPHERAL MOTOR NEUROPATHY [None]
